FAERS Safety Report 4295040-X (Version None)
Quarter: 2004Q1

REPORT INFORMATION
  Report Type: 
  Country: None (occurrence: None)
  Receive Date: 20040213
  Receipt Date: 20040130
  Transmission Date: 20041129
  Serious: Yes (Hospitalization)
  Sender: FDA-Public Use
  Company Number: A-CH2002-01676

PATIENT
  Age: 75 Year
  Sex: Male
  Weight: 86.5 kg

DRUGS (18)
  1. BOSENTAN(BOSENTAN TABLET 62.5 MG) TABLET [Suspect]
     Indication: PULMONARY HYPERTENSION
     Dosage: SEE IMAGE
     Route: 048
     Dates: start: 20021115, end: 20021122
  2. BOSENTAN(BOSENTAN TABLET 62.5 MG) TABLET [Suspect]
     Indication: PULMONARY HYPERTENSION
     Dosage: SEE IMAGE
     Route: 048
     Dates: start: 20021126, end: 20021217
  3. BOSENTAN(BOSENTAN TABLET 62.5 MG) TABLET [Suspect]
     Indication: PULMONARY HYPERTENSION
     Dosage: SEE IMAGE
     Route: 048
     Dates: start: 20021217
  4. WARFARIN SODIUM [Suspect]
     Dosage: ORAL
     Route: 048
     Dates: start: 20011001, end: 20021122
  5. DILTIAZEM [Concomitant]
  6. ZANTAC [Concomitant]
  7. FERROUS SULFATE TAB [Concomitant]
  8. FUROSEMIDE [Concomitant]
  9. INDAPAMIDE [Concomitant]
  10. SLOW-K [Concomitant]
  11. COLCHICINE (COLCHICINE) [Concomitant]
  12. ATROVENT [Concomitant]
  13. PREDNISOLONE [Concomitant]
  14. GABAPENTIN [Concomitant]
  15. ALDACTONE [Concomitant]
  16. PERINDOPRIL (PERINDOPRIL) [Concomitant]
  17. ALLOPURINOL [Concomitant]
  18. DIGOXIN [Concomitant]

REACTIONS (9)
  - ANAEMIA [None]
  - CHILLS [None]
  - FAECES DISCOLOURED [None]
  - GASTROINTESTINAL ARTERIOVENOUS MALFORMATION [None]
  - GASTROINTESTINAL HAEMORRHAGE [None]
  - LEFT VENTRICULAR FAILURE [None]
  - PNEUMONIA [None]
  - PULMONARY HYPERTENSION [None]
  - PYREXIA [None]
